FAERS Safety Report 14927427 (Version 2)
Quarter: 2018Q3

REPORT INFORMATION
  Report Type: Spontaneous
  Country: US (occurrence: US)
  Receive Date: 20180523
  Receipt Date: 20180912
  Transmission Date: 20181010
  Serious: No
  Sender: FDA-Public Use
  Company Number: US-PFIZER INC-2018208605

PATIENT
  Age: 47 Year
  Sex: Female
  Weight: 77.98 kg

DRUGS (4)
  1. METHYLPHENIDATE [METHYLPHENIDATE HYDROCHLORIDE] [Concomitant]
     Dosage: UNK
     Dates: start: 2000, end: 20180701
  2. VENLAFAXINE HCL [Suspect]
     Active Substance: VENLAFAXINE HYDROCHLORIDE
     Indication: ANXIETY
     Dosage: 75 MG, UNK
     Dates: start: 20150327
  3. VENLAFAXINE HCL [Suspect]
     Active Substance: VENLAFAXINE HYDROCHLORIDE
     Indication: DEPRESSION
     Dosage: 75 MG, 1X/DAY
     Dates: start: 20150327
  4. VENLAFAXINE HCL [Suspect]
     Active Substance: VENLAFAXINE HYDROCHLORIDE
     Indication: ATTENTION DEFICIT/HYPERACTIVITY DISORDER
     Dosage: 75 MG, UNK
     Dates: start: 20150327

REACTIONS (9)
  - Herpes zoster [Unknown]
  - Muscle spasms [Not Recovered/Not Resolved]
  - Restless legs syndrome [Not Recovered/Not Resolved]
  - Mood swings [Unknown]
  - Sleep disorder [Unknown]
  - Withdrawal syndrome [Unknown]
  - Muscle twitching [Not Recovered/Not Resolved]
  - Dyskinesia [Unknown]
  - Drug ineffective [Unknown]
